FAERS Safety Report 9317528 (Version 1)
Quarter: 2013Q2

REPORT INFORMATION
  Report Type: Spontaneous
  Country: US (occurrence: US)
  Receive Date: 20130530
  Receipt Date: 20130530
  Transmission Date: 20140414
  Serious: No
  Sender: FDA-Public Use
  Company Number: US-GLAXOSMITHKLINE-A0972014A

PATIENT
  Age: 48 Year
  Sex: Female

DRUGS (3)
  1. VENTOLIN [Suspect]
     Indication: RESPIRATORY TRACT CONGESTION
     Dosage: 2PUFF AS REQUIRED
     Route: 055
     Dates: start: 20120312, end: 20120329
  2. KLONOPIN [Concomitant]
  3. ALEVE [Concomitant]

REACTIONS (5)
  - Hypersensitivity [Not Recovered/Not Resolved]
  - Non-cardiac chest pain [Unknown]
  - Drug ineffective [Unknown]
  - Asthenia [Unknown]
  - Nervousness [Unknown]
